FAERS Safety Report 11523950 (Version 1)
Quarter: 2015Q3

REPORT INFORMATION
  Report Type: Spontaneous
  Country: US (occurrence: US)
  Receive Date: 20150918
  Receipt Date: 20150918
  Transmission Date: 20151125
  Serious: No
  Sender: FDA-Public Use
  Company Number: US-ROCHE-703203

PATIENT
  Age: 54 Year
  Sex: Male
  Weight: 112.7 kg

DRUGS (16)
  1. PEGASYS [Suspect]
     Active Substance: PEGINTERFERON ALFA-2A
     Route: 058
  2. NEXIUM [Concomitant]
     Active Substance: ESOMEPRAZOLE MAGNESIUM
     Route: 065
  3. PROPOXYPHENE HCL COMPOUND [Concomitant]
     Dosage: DRUG REPORTED AS: PROPOXYPHENE HCL. FREQUENCY: AS PER REQUIRED.
     Route: 065
  4. METHADONE [Concomitant]
     Active Substance: METHADONE HYDROCHLORIDE
     Route: 065
  5. COPEGUS [Suspect]
     Active Substance: RIBAVIRIN
     Indication: HEPATITIS C
     Dosage: IN DIVIDED DOSES
     Route: 048
     Dates: start: 20100430, end: 20100528
  6. CARISOPRODOL. [Concomitant]
     Active Substance: CARISOPRODOL
     Route: 065
  7. DIPHENHYDRAMINE. [Concomitant]
     Active Substance: DIPHENHYDRAMINE
     Dosage: DRUG REPORTED AS: DIPHENHYDRAMINE/HYDROXYZINE. FREQUENCY: AS PER REQUIRED.
     Route: 065
  8. POTASSIUM CHLORIDE. [Concomitant]
     Active Substance: POTASSIUM CHLORIDE
     Route: 065
  9. VERAPAMIL [Concomitant]
     Active Substance: VERAPAMIL HYDROCHLORIDE
     Dosage: DRUG REPORTED AS: VERAPAMIL SR
     Route: 065
  10. BACTRIM [Concomitant]
     Active Substance: SULFAMETHOXAZOLE\TRIMETHOPRIM
     Route: 065
  11. HYDROCODONE [Concomitant]
     Active Substance: HYDROCODONE
     Dosage: DRUG REPORTED AS: HYDROCODONE/APAP. FREQUECY: AS PER REQUIRED.
     Route: 065
  12. PEGASYS [Suspect]
     Active Substance: PEGINTERFERON ALFA-2A
     Indication: HEPATITIS C
     Dosage: FORM: PRE-FILLED SYRINGE (PFS). STRENGTH:180 MCG/0.5 ML
     Route: 058
     Dates: start: 20100430, end: 20100528
  13. COPEGUS [Suspect]
     Active Substance: RIBAVIRIN
     Dosage: IN DIVIDED DOSES
     Route: 048
  14. BACLOFEN. [Concomitant]
     Active Substance: BACLOFEN
     Dosage: FREQUENCY: AS PER REQUIRED.
     Route: 065
  15. HYDROCHLOROTHIAZIDE/LISINOPRIL [Concomitant]
     Active Substance: HYDROCHLOROTHIAZIDE\LISINOPRIL
     Route: 065
  16. FUROSEMIDE. [Concomitant]
     Active Substance: FUROSEMIDE
     Route: 065

REACTIONS (10)
  - Chills [Recovered/Resolved]
  - Tremor [Recovered/Resolved]
  - Muscle contracture [Recovered/Resolved]
  - Yawning [Recovered/Resolved]
  - Nausea [Unknown]
  - Photopsia [Not Recovered/Not Resolved]
  - Vomiting [Unknown]
  - Myalgia [Recovered/Resolved]
  - Visual impairment [Recovered/Resolved]
  - Headache [Unknown]

NARRATIVE: CASE EVENT DATE: 20100430
